FAERS Safety Report 5592205-1 (Version None)
Quarter: 2008Q1

REPORT INFORMATION
  Report Type: 
  Country: None (occurrence: None)
  Receive Date: 20080111
  Receipt Date: 20080104
  Transmission Date: 20080703
  Serious: Yes (Hospitalization)
  Sender: FDA-Public Use
  Company Number: 163-C5013-08010323

PATIENT
  Age: 81 Year
  Sex: Female

DRUGS (1)
  1. CC-5013    (LENALIDOMIDE) [Suspect]
     Indication: MYELODYSPLASTIC SYNDROME
     Dosage: 5 MG, QD, ORAL
     Route: 048
     Dates: start: 20040219

REACTIONS (2)
  - ELECTROLYTE IMBALANCE [None]
  - HYPERTENSION [None]
